FAERS Safety Report 12125593 (Version 1)
Quarter: 2016Q1

REPORT INFORMATION
  Report Type: Spontaneous
  Country: US (occurrence: US)
  Receive Date: 20160229
  Receipt Date: 20160229
  Transmission Date: 20160526
  Serious: No
  Sender: FDA-Public Use
  Company Number: US-ASTRAZENECA-2016SE17644

PATIENT
  Age: 29860 Day
  Sex: Female
  Weight: 67.1 kg

DRUGS (3)
  1. OXYCODONE [Concomitant]
     Active Substance: OXYCODONE
     Indication: ARTHRITIS
     Route: 048
     Dates: start: 2014
  2. MOVANTIK [Suspect]
     Active Substance: NALOXEGOL OXALATE
     Indication: CONSTIPATION
     Route: 048
     Dates: start: 20160213, end: 20160216
  3. MIRALAX [Concomitant]
     Active Substance: POLYETHYLENE GLYCOL 3350
     Indication: CONSTIPATION
     Dosage: AT NIGHT
     Route: 048

REACTIONS (5)
  - Diarrhoea [Unknown]
  - Bowel movement irregularity [Unknown]
  - Nervousness [Unknown]
  - Mood altered [Unknown]
  - Irritability [Unknown]

NARRATIVE: CASE EVENT DATE: 20160215
